FAERS Safety Report 9005783 (Version 1)
Quarter: 2013Q1

REPORT INFORMATION
  Report Type: Spontaneous
  Country: US (occurrence: US)
  Receive Date: 20130109
  Receipt Date: 20130109
  Transmission Date: 20140127
  Serious: Yes (Other)
  Sender: FDA-Public Use
  Company Number: US-ABBOTT-12P-163-0934114-00

PATIENT
  Age: 31 Year
  Sex: Female
  Weight: 84.44 kg

DRUGS (5)
  1. VICODIN [Suspect]
     Indication: BACK PAIN
  2. OXYIR [Suspect]
     Indication: BACK PAIN
     Dates: start: 20040406, end: 20040810
  3. LEXAPRO [Concomitant]
     Indication: PRODUCT USED FOR UNKNOWN INDICATION
     Dates: start: 20040504
  4. OXYLR [Concomitant]
     Indication: BACK PAIN
     Dosage: TRANSDERMAL PATCH; BLINDED THERAPY
     Dates: start: 20040406, end: 20040810
  5. BUPRENORPHINE [Concomitant]
     Indication: PRODUCT USED FOR UNKNOWN INDICATION

REACTIONS (1)
  - Drug abuse [Unknown]
